FAERS Safety Report 7382914-6 (Version None)
Quarter: 2011Q1

REPORT INFORMATION
  Report Type: 
  Country: None (occurrence: None)
  Receive Date: 20110316
  Receipt Date: 20110223
  Transmission Date: 20110831
  Serious: Yes (Hospitalization, Disabling, Other)
  Sender: FDA-Public Use
  Company Number: 2128643-2011-00013

PATIENT
  Age: 8 Day
  Sex: Male

DRUGS (5)
  1. UAC [Concomitant]
  2. ALCOHOL PREP PADS/SWABS/SWABSTICKS [Suspect]
     Indication: CATHETER PLACEMENT
     Dosage: MULTIPLE
  3. ALCOHOL PREP PADS/SWABS/SWABSTICKS [Suspect]
     Indication: BLOOD TEST
     Dosage: MULTIPLE
  4. NASAL CPAP [Concomitant]
  5. UVC [Concomitant]

REACTIONS (6)
  - HYDROCEPHALUS [None]
  - BACILLUS TEST POSITIVE [None]
  - MENINGITIS [None]
  - ENCEPHALITIS [None]
  - PRODUCT CONTAMINATION MICROBIAL [None]
  - PRODUCT QUALITY ISSUE [None]
